FAERS Safety Report 17746645 (Version 1)
Quarter: 2020Q2

REPORT INFORMATION
  Report Type: Spontaneous
  Country: FR (occurrence: FR)
  Receive Date: 20200505
  Receipt Date: 20200505
  Transmission Date: 20200714
  Serious: Yes (Congenital Anomaly)
  Sender: FDA-Public Use
  Company Number: FR-MYLANLABS-2020M1042342

PATIENT
  Sex: Male

DRUGS (1)
  1. VALPROIC ACID. [Suspect]
     Active Substance: VALPROIC ACID
     Indication: PRODUCT USED FOR UNKNOWN INDICATION
     Dosage: UNK, STOP DATE-16-SEP-1992
     Route: 064

REACTIONS (15)
  - Speech disorder [Unknown]
  - Disturbance in social behaviour [Unknown]
  - Dysarthria [Unknown]
  - Behaviour disorder [Unknown]
  - Anxiety disorder [Unknown]
  - Speech disorder developmental [Unknown]
  - Bradyphrenia [Unknown]
  - Educational problem [Unknown]
  - Language disorder [Unknown]
  - Psychomotor skills impaired [Unknown]
  - Psychomotor hyperactivity [Unknown]
  - Foetal exposure during pregnancy [Recovered/Resolved]
  - Learning disability [Unknown]
  - Disturbance in attention [Unknown]
  - Fatigue [Unknown]

NARRATIVE: CASE EVENT DATE: 19920916
